FAERS Safety Report 18553839 (Version 2)
Quarter: 2021Q1

REPORT INFORMATION
  Report Type: Spontaneous
  Country: SE (occurrence: SE)
  Receive Date: 20201127
  Receipt Date: 20210111
  Transmission Date: 20210419
  Serious: Yes (Other)
  Sender: FDA-Public Use
  Company Number: SE-TEVA-2020-SE-1853592

PATIENT
  Age: 63 Year
  Sex: Female

DRUGS (3)
  1. CITALOPRAM [Concomitant]
     Active Substance: CITALOPRAM HYDROBROMIDE
     Dates: start: 202001
  2. AJOVY [Suspect]
     Active Substance: FREMANEZUMAB-VFRM
     Indication: MIGRAINE
     Route: 058
     Dates: start: 20200717, end: 20201009
  3. CANDESARTAN. [Concomitant]
     Active Substance: CANDESARTAN
     Dates: start: 20170101

REACTIONS (8)
  - Constipation [Unknown]
  - Fatigue [Unknown]
  - Weight increased [Unknown]
  - Tinnitus [Unknown]
  - Abnormal dreams [Unknown]
  - Alopecia [Unknown]
  - Arthralgia [Unknown]
  - Dry mouth [Unknown]

NARRATIVE: CASE EVENT DATE: 202008
